FAERS Safety Report 6340505-X (Version None)
Quarter: 2009Q3

REPORT INFORMATION
  Report Type: 
  Country: None (occurrence: None)
  Receive Date: 20090904
  Receipt Date: 20090901
  Transmission Date: 20100115
  Serious: Yes (Disabling)
  Sender: FDA-Public Use
  Company Number: GB-JNJFOC-20090900664

PATIENT
  Age: 86 Year
  Sex: Female

DRUGS (5)
  1. FENTANYL [Suspect]
     Indication: DRUG USE FOR UNKNOWN INDICATION
     Route: 062
     Dates: start: 20080519
  2. VENLAFAXINE HYDROCHLORIDE [Suspect]
     Indication: DEPRESSION
     Route: 048
  3. LORAZEPAM [Concomitant]
     Indication: AGITATION
     Route: 048
  4. OLANZAPINE [Concomitant]
     Indication: AGITATION
     Route: 048
  5. OMEPRAZOLE [Concomitant]
     Indication: ABDOMINAL DISCOMFORT
     Route: 048

REACTIONS (3)
  - AGITATION [None]
  - HYPERHIDROSIS [None]
  - SEROTONIN SYNDROME [None]
